FAERS Safety Report 4845908-8 (Version None)
Quarter: 2005Q4

REPORT INFORMATION
  Report Type: 
  Country: None (occurrence: None)
  Receive Date: 20051130
  Receipt Date: 20051116
  Transmission Date: 20060501
  Serious: Yes (Other)
  Sender: FDA-Public Use
  Company Number: USA-2005-0021837

PATIENT
  Age: 53 Year
  Sex: Male

DRUGS (12)
  1. MS CONTIN [Suspect]
     Indication: DRUG USE FOR UNKNOWN INDICATION
     Dosage: 80 MG, BID
  2. ATIVAN [Suspect]
     Indication: DRUG USE FOR UNKNOWN INDICATION
  3. SENOKOT [Concomitant]
  4. COUMADIN [Concomitant]
  5. BENAZEPRIL HCL [Concomitant]
  6. CLONIDINE [Concomitant]
  7. DIGOXIN [Concomitant]
  8. FLOMAX (MORNIFLUMATE) [Concomitant]
  9. METOPROLOL (METOPROLOL) [Concomitant]
  10. ALLOPURINOL [Concomitant]
  11. PREDNISONE PRO [Concomitant]
  12. ASPIRIN [Concomitant]

REACTIONS (11)
  - AGGRESSION [None]
  - AGITATION [None]
  - BLOOD PRESSURE INCREASED [None]
  - DRUG WITHDRAWAL SYNDROME [None]
  - HEART RATE INCREASED [None]
  - MARITAL PROBLEM [None]
  - MULTIPLE DRUG OVERDOSE INTENTIONAL [None]
  - RESPIRATORY DEPRESSION [None]
  - SUICIDE ATTEMPT [None]
  - TACHYCARDIA [None]
  - UNRESPONSIVE TO VERBAL STIMULI [None]
